FAERS Safety Report 5160324-X (Version None)
Quarter: 2006Q4

REPORT INFORMATION
  Report Type: 
  Country: None (occurrence: None)
  Receive Date: 20061120
  Receipt Date: 20061110
  Transmission Date: 20070319
  Serious: Yes (Hospitalization)
  Sender: FDA-Public Use
  Company Number: 2006BI013681

PATIENT
  Age: 50 Year
  Sex: Female
  Weight: 77.1115 kg

DRUGS (8)
  1. AVONEX [Suspect]
     Indication: MULTIPLE SCLEROSIS
     Dosage: 30 UG;QW;IM
     Route: 030
     Dates: start: 20040213
  2. ESTRADIAL [Concomitant]
  3. ZANAFLEX [Concomitant]
  4. LIPITOR [Concomitant]
  5. LIPITOR [Concomitant]
  6. CALCIUM [Concomitant]
  7. VITAMIN CAP [Concomitant]
  8. ASPIRIN [Concomitant]

REACTIONS (8)
  - CHOLELITHIASIS [None]
  - EYE PAIN [None]
  - INFLUENZA LIKE ILLNESS [None]
  - INJECTION SITE BRUISING [None]
  - INJECTION SITE HAEMORRHAGE [None]
  - MUSCLE FATIGUE [None]
  - MUSCLE SPASMS [None]
  - POST PROCEDURAL COMPLICATION [None]
